FAERS Safety Report 12092621 (Version 3)
Quarter: 2016Q1

REPORT INFORMATION
  Report Type: Spontaneous
  Country: FR (occurrence: FR)
  Receive Date: 20160219
  Receipt Date: 20160325
  Transmission Date: 20160526
  Serious: Yes (Life-Threatening, Hospitalization, Other)
  Sender: FDA-Public Use
  Company Number: FR-SA-2016SA027656

PATIENT
  Age: 4 Year
  Sex: Male
  Weight: 15 kg

DRUGS (1)
  1. MYOZYME [Suspect]
     Active Substance: ALGLUCOSIDASE ALFA
     Indication: GLYCOGEN STORAGE DISEASE TYPE II
     Route: 041
     Dates: start: 20121119

REACTIONS (3)
  - Osteoporosis [Not Recovered/Not Resolved]
  - Ill-defined disorder [Recovered/Resolved]
  - Fracture [Recovered/Resolved with Sequelae]

NARRATIVE: CASE EVENT DATE: 201511
